FAERS Safety Report 4371120-5 (Version None)
Quarter: 2004Q2

REPORT INFORMATION
  Report Type: 
  Country: None (occurrence: None)
  Receive Date: 20040604
  Receipt Date: 20011204
  Transmission Date: 20050107
  Serious: Yes (Hospitalization, Disabling, Other)
  Sender: FDA-Public Use
  Company Number: US-MERCK-01120434

PATIENT
  Age: 48 Year
  Sex: Male
  Weight: 72 kg

DRUGS (4)
  1. MA HUANG EXTRACT [Concomitant]
     Indication: MEDICAL DIET
     Route: 065
     Dates: start: 19991001, end: 20031201
  2. VIOXX [Suspect]
     Indication: MYALGIA
     Route: 048
     Dates: start: 20000808, end: 20010201
  3. VIOXX [Suspect]
     Indication: BONE PAIN
     Route: 048
     Dates: start: 20000808, end: 20010201
  4. AMBIEN [Concomitant]
     Indication: SLEEP DISORDER
     Route: 065

REACTIONS (15)
  - ATRIAL FIBRILLATION [None]
  - BRONCHITIS [None]
  - COAGULATION FACTOR VIII LEVEL INCREASED [None]
  - DEPRESSION [None]
  - EMOTIONAL DISTRESS [None]
  - HAEMOPTYSIS [None]
  - INFLUENZA [None]
  - INSOMNIA [None]
  - INTERNATIONAL NORMALISED RATIO INCREASED [None]
  - PAIN [None]
  - PULMONARY EMBOLISM [None]
  - PULMONARY HYPERTENSION [None]
  - RENAL CYST [None]
  - SUICIDAL IDEATION [None]
  - UPPER RESPIRATORY TRACT INFECTION [None]
